FAERS Safety Report 5077703-1 (Version None)
Quarter: 2006Q3

REPORT INFORMATION
  Report Type: 
  Country: None (occurrence: None)
  Receive Date: 20060725
  Receipt Date: 20060614
  Transmission Date: 20061208
  Serious: No
  Sender: FDA-Public Use
  Company Number: 200614156BWH

PATIENT
  Sex: Male

DRUGS (4)
  1. NEXAVAR [Suspect]
     Indication: DRUG USE FOR UNKNOWN INDICATION
     Dosage: SEE IMAGE
     Route: 048
     Dates: start: 20051201, end: 20060501
  2. NEXAVAR [Suspect]
     Indication: DRUG USE FOR UNKNOWN INDICATION
     Dosage: SEE IMAGE
     Route: 048
     Dates: start: 20060501
  3. PAIN MEDICATION [Concomitant]
  4. PAXIL [Concomitant]

REACTIONS (2)
  - BLISTER [None]
  - PAIN IN EXTREMITY [None]
